FAERS Safety Report 11772298 (Version 1)
Quarter: 2015Q4

REPORT INFORMATION
  Report Type: Spontaneous
  Country: CA (occurrence: CA)
  Receive Date: 20151124
  Receipt Date: 20151124
  Transmission Date: 20160304
  Serious: Yes (Other)
  Sender: FDA-Public Use
  Company Number: CA-TEVA-610786ACC

PATIENT
  Age: 53 Year
  Sex: Male
  Weight: 101 kg

DRUGS (6)
  1. HYDROMORPHONE [Concomitant]
     Active Substance: HYDROMORPHONE
  2. CLONAZEPAM. [Concomitant]
     Active Substance: CLONAZEPAM
  3. PMS-FERROUS SULFATE [Concomitant]
  4. STATEX [Concomitant]
     Active Substance: MORPHINE SULFATE
  5. CLOXACILLIN SODIUM FOR INJECTION [Suspect]
     Active Substance: CLOXACILLIN
     Indication: STAPHYLOCOCCAL BACTERAEMIA
     Dosage: 12 GRAM DAILY;
     Route: 042
  6. CLOXACILLIN SODIUM FOR INJECTION [Suspect]
     Active Substance: CLOXACILLIN
     Indication: INTERVERTEBRAL DISCITIS

REACTIONS (1)
  - Renal failure [Recovered/Resolved]
